FAERS Safety Report 26099087 (Version 1)
Quarter: 2025Q4

REPORT INFORMATION
  Report Type: Spontaneous
  Country: CN (occurrence: CN)
  Receive Date: 20251128
  Receipt Date: 20251128
  Transmission Date: 20260118
  Serious: Yes (Other)
  Sender: ACCORD
  Company Number: CN-Accord-514188

PATIENT
  Age: 61 Year
  Sex: Female

DRUGS (8)
  1. GEMCITABINE [Suspect]
     Active Substance: GEMCITABINE
     Indication: Ductal adenocarcinoma of pancreas
     Dosage: ON DAYS 1, 8
     Route: 042
     Dates: start: 2020
  2. TS-1 [Suspect]
     Active Substance: GIMERACIL\OTERACIL POTASSIUM\TEGAFUR
     Indication: Ductal adenocarcinoma of pancreas
     Dosage: 80 MG/M2 ON ALTERNATE DAYS FOR 14 CONSECUTIVE DAYS, REPEATED EVERY 21 DAYS
     Route: 048
     Dates: start: 2020
  3. ACARBOSE [Concomitant]
     Active Substance: ACARBOSE
     Indication: Type 2 diabetes mellitus
  4. ENTECAVIR [Concomitant]
     Active Substance: ENTECAVIR
     Indication: Chronic hepatitis B
  5. GEMCITABINE [Suspect]
     Active Substance: GEMCITABINE
     Indication: Metastases to liver
     Dosage: ON DAYS 1, 8
     Route: 042
     Dates: start: 2020
  6. TS-1 [Suspect]
     Active Substance: GIMERACIL\OTERACIL POTASSIUM\TEGAFUR
     Indication: Pancreatic carcinoma stage IV
     Dosage: 80 MG/M2 ON ALTERNATE DAYS FOR 14 CONSECUTIVE DAYS, REPEATED EVERY 21 DAYS
     Route: 048
     Dates: start: 2020
  7. TS-1 [Suspect]
     Active Substance: GIMERACIL\OTERACIL POTASSIUM\TEGAFUR
     Indication: Metastases to liver
     Dosage: 80 MG/M2 ON ALTERNATE DAYS FOR 14 CONSECUTIVE DAYS, REPEATED EVERY 21 DAYS
     Route: 048
     Dates: start: 2020
  8. GEMCITABINE [Suspect]
     Active Substance: GEMCITABINE
     Indication: Pancreatic carcinoma stage IV
     Dosage: ON DAYS 1, 8
     Dates: start: 2020

REACTIONS (2)
  - Leukopenia [Unknown]
  - Stomatitis [Unknown]

NARRATIVE: CASE EVENT DATE: 20200101
